FAERS Safety Report 11155740 (Version 1)
Quarter: 2015Q2

REPORT INFORMATION
  Report Type: Other
  Country: GB (occurrence: GB)
  Receive Date: 20150602
  Receipt Date: 20150602
  Transmission Date: 20150821
  Serious: Yes (Other)
  Sender: FDA-Public Use
  Company Number: GB-MYLANLABS-2015M1016833

PATIENT

DRUGS (8)
  1. OMEPRAZOLE. [Suspect]
     Active Substance: OMEPRAZOLE
     Dosage: 20 MG, QD
     Dates: start: 201201, end: 201503
  2. BISOPROLOL [Concomitant]
     Active Substance: BISOPROLOL
     Dosage: 2.5 MG, QD (CURRENT)
     Dates: start: 2005
  3. GLICLAZIDE [Concomitant]
     Active Substance: GLICLAZIDE
     Dosage: 160 MG, BID (2 TAKEN TWICE A DAY.)
  4. COMBODART [Concomitant]
     Active Substance: DUTASTERIDE\TAMSULOSIN
     Dosage: 1 DF, QD (0.5MG / 0.4MG. POSSIBLY STARTED JUNE 2014. CURRENT)
     Dates: start: 2014
  5. ASPIRIN. [Concomitant]
     Active Substance: ASPIRIN
     Dosage: 75 MG, QD
  6. SIMVASTATIN. [Concomitant]
     Active Substance: SIMVASTATIN
     Dosage: 20 MG, QD (STARTED POSSIBLY 2005.)
  7. LISINOPRIL. [Concomitant]
     Active Substance: LISINOPRIL
     Dosage: 5 MG, QD (STARTED POSSIBLY 2005.)
  8. METFORMIN [Concomitant]
     Active Substance: METFORMIN HYDROCHLORIDE
     Dosage: 1000 MG, BID (2 TAKEN TWICE A DAY.)

REACTIONS (5)
  - Hyperchlorhydria [Recovering/Resolving]
  - Abnormal loss of weight [Recovering/Resolving]
  - Ageusia [Recovering/Resolving]
  - Depression [Recovering/Resolving]
  - Decreased appetite [Recovering/Resolving]

NARRATIVE: CASE EVENT DATE: 201502
